FAERS Safety Report 5565134-7 (Version None)
Quarter: 2007Q4

REPORT INFORMATION
  Report Type: 
  Country: None (occurrence: None)
  Receive Date: 20071218
  Receipt Date: 20071211
  Transmission Date: 20080405
  Serious: Yes (Other)
  Sender: FDA-Public Use
  Company Number: JP-MERCK-0712USA02543

PATIENT
  Age: 77 Year
  Sex: Female

DRUGS (2)
  1. PEPCID RPD [Suspect]
     Route: 048
     Dates: start: 20070101, end: 20070101
  2. [THERAPY UNSPECIFIED] [Suspect]
     Route: 065

REACTIONS (1)
  - LIVER DISORDER [None]
